FAERS Safety Report 25497305 (Version 2)
Quarter: 2025Q3

REPORT INFORMATION
  Report Type: Spontaneous
  Country: BR (occurrence: BR)
  Receive Date: 20250701
  Receipt Date: 20250818
  Transmission Date: 20251020
  Serious: Yes (Other)
  Sender: NOVO NORDISK
  Company Number: BR-NOVOPROD-1467946

PATIENT
  Sex: Male
  Weight: 76 kg

DRUGS (3)
  1. NOVOLIN N [Suspect]
     Active Substance: INSULIN HUMAN
     Indication: Diabetes mellitus
     Dosage: 12 IU, QD (6 UNITS USED BEFORE BREAKFAST AND BEFORE LUNCH)
     Dates: start: 20250527
  2. NOVOLIN N [Suspect]
     Active Substance: INSULIN HUMAN
  3. DEXAMETHASONE [Concomitant]
     Active Substance: DEXAMETHASONE
     Indication: Product used for unknown indication

REACTIONS (1)
  - Chemotherapy [Unknown]
